FAERS Safety Report 7097826-5 (Version None)
Quarter: 2010Q4

REPORT INFORMATION
  Report Type: 
  Country: None (occurrence: None)
  Receive Date: 20101112
  Receipt Date: 20101102
  Transmission Date: 20110411
  Serious: No
  Sender: FDA-Public Use
  Company Number: US-JNJFOC-20101101387

PATIENT
  Sex: Female
  Weight: 86 kg

DRUGS (17)
  1. GOLIMUMAB [Suspect]
     Indication: RHEUMATOID ARTHRITIS
     Route: 058
  2. GOLIMUMAB [Suspect]
     Route: 058
  3. METHOTREXATE [Suspect]
     Indication: RHEUMATOID ARTHRITIS
     Route: 048
  4. METHOTREXATE [Concomitant]
     Route: 048
  5. IBUPROFEN [Concomitant]
     Route: 048
  6. TYLENOL (CAPLET) [Concomitant]
     Route: 048
  7. TYLENOL (CAPLET) [Concomitant]
     Route: 048
  8. ALEVE (CAPLET) [Concomitant]
     Route: 048
  9. ALEVE (CAPLET) [Concomitant]
     Route: 048
  10. CALCIUM CITRATE [Concomitant]
     Route: 048
  11. LUNESTA [Concomitant]
     Route: 048
  12. FOLIC ACID [Concomitant]
     Route: 048
  13. FOLIC ACID [Concomitant]
     Route: 048
  14. ASPIRIN [Concomitant]
     Route: 048
  15. NYQUIL [Concomitant]
     Route: 048
  16. NAPROXEN [Concomitant]
     Route: 048
  17. HYDROCORTISONE [Concomitant]
     Route: 061

REACTIONS (1)
  - BASAL CELL CARCINOMA [None]
